FAERS Safety Report 23933335 (Version 1)
Quarter: 2024Q2

REPORT INFORMATION
  Report Type: Spontaneous
  Country: US (occurrence: US)
  Receive Date: 20240603
  Receipt Date: 20240603
  Transmission Date: 20240715
  Serious: No
  Sender: FDA-Public Use
  Company Number: None

PATIENT
  Age: 45 Year
  Sex: Female

DRUGS (3)
  1. BUDESONIDE [Suspect]
     Active Substance: BUDESONIDE
     Indication: IgA nephropathy
     Dosage: TARGETED-RELEASE FORMULATION (TRF)
  2. LISINOPRIL [Concomitant]
     Active Substance: LISINOPRIL
     Indication: IgA nephropathy
     Dosage: ON MAXIMUM TOLERATED DOSE OF LISINOPRIL
  3. EMPAGLIFLOZIN [Concomitant]
     Active Substance: EMPAGLIFLOZIN
     Indication: IgA nephropathy

REACTIONS (2)
  - Acne [Unknown]
  - Swelling face [Unknown]
